FAERS Safety Report 12511189 (Version 2)
Quarter: 2016Q2

REPORT INFORMATION
  Report Type: Report from Study
  Country: US (occurrence: US)
  Receive Date: 20160629
  Receipt Date: 20160630
  Transmission Date: 20160815
  Serious: Yes (Other)
  Sender: FDA-Public Use
  Company Number: US-ABBVIE-16P-163-1663910-00

PATIENT
  Age: 37 Year
  Sex: Female

DRUGS (3)
  1. TECHNIVIE [Suspect]
     Active Substance: OMBITASVIR HEMINONAHYDRATE\PARITAPREVIR DIHYDRATE\RITONAVIR
     Indication: CHRONIC HEPATITIS C
     Route: 048
     Dates: start: 20160510
  2. MODERIBA [Suspect]
     Active Substance: RIBAVIRIN
     Indication: CHRONIC HEPATITIS C
     Dosage: 600 MG EVERY AM, 400 MG  EVERY PM
     Route: 048
     Dates: start: 20160510
  3. KEPPRA [Concomitant]
     Active Substance: LEVETIRACETAM
     Indication: PRODUCT USED FOR UNKNOWN INDICATION

REACTIONS (14)
  - Peripheral coldness [Not Recovered/Not Resolved]
  - Palpitations [Recovered/Resolved]
  - Weight decreased [Not Recovered/Not Resolved]
  - Muscle twitching [Unknown]
  - Asthenia [Not Recovered/Not Resolved]
  - Blood potassium decreased [Recovered/Resolved]
  - Muscular weakness [Unknown]
  - Cardiac disorder [Not Recovered/Not Resolved]
  - Blood magnesium decreased [Recovered/Resolved]
  - Vomiting [Recovered/Resolved]
  - Paraesthesia [Not Recovered/Not Resolved]
  - Tooth infection [Recovered/Resolved]
  - Anxiety [Unknown]
  - Paraesthesia [Unknown]

NARRATIVE: CASE EVENT DATE: 20160620
